FAERS Safety Report 4784507-3 (Version None)
Quarter: 2005Q3

REPORT INFORMATION
  Report Type: 
  Country: None (occurrence: None)
  Receive Date: 20050930
  Receipt Date: 20041203
  Transmission Date: 20060218
  Serious: Yes (Other)
  Sender: FDA-Public Use
  Company Number: GB-GLAXOSMITHKLINE-B0359424A

PATIENT
  Sex: Female

DRUGS (1)
  1. SEROXAT [Suspect]
     Indication: PANIC DISORDER
     Route: 065
     Dates: start: 19980127

REACTIONS (7)
  - ANXIETY [None]
  - COMPLETED SUICIDE [None]
  - HYPOAESTHESIA [None]
  - ILL-DEFINED DISORDER [None]
  - INSOMNIA [None]
  - NAUSEA [None]
  - PARAESTHESIA [None]
